FAERS Safety Report 5244950-5 (Version None)
Quarter: 2007Q1

REPORT INFORMATION
  Report Type: 
  Country: None (occurrence: None)
  Receive Date: 20070223
  Receipt Date: 20070214
  Transmission Date: 20070707
  Serious: Yes (Hospitalization)
  Sender: FDA-Public Use
  Company Number: NL-JNJFOC-20061103566

PATIENT
  Sex: Female
  Weight: 42 kg

DRUGS (7)
  1. INFLIXIMAB [Suspect]
     Indication: CROHN'S DISEASE
     Route: 042
  2. IMURAN [Suspect]
     Indication: CROHN'S DISEASE
     Route: 065
  3. PREDNISON [Concomitant]
     Indication: CROHN'S DISEASE
     Route: 065
  4. SULFASALAZINE [Concomitant]
     Indication: CROHN'S DISEASE
     Dosage: 4-6 DOSES IN 1 DAY
     Route: 065
  5. VITAMIN B-12 [Concomitant]
     Indication: CROHN'S DISEASE
     Route: 030
  6. OMEPRAZOLE [Concomitant]
     Indication: GASTRIC DISORDER
     Route: 065
  7. DEXAMETHASONE [Concomitant]
     Route: 065

REACTIONS (5)
  - ADENOCARCINOMA [None]
  - CROHN'S DISEASE [None]
  - GASTROINTESTINAL STOMA COMPLICATION [None]
  - ILEAL STENOSIS [None]
  - LEUKOPENIA [None]
